FAERS Safety Report 12921402 (Version 1)
Quarter: 2016Q4

REPORT INFORMATION
  Report Type: Spontaneous
  Country: IT (occurrence: IT)
  Receive Date: 20161108
  Receipt Date: 20161108
  Transmission Date: 20170207
  Serious: Yes (Death)
  Sender: FDA-Public Use
  Company Number: IT-BAYER-2016-212240

PATIENT
  Age: 91 Year
  Sex: Female

DRUGS (1)
  1. CARDIOASPIRIN [Suspect]
     Active Substance: ASPIRIN
     Indication: THROMBOSIS PROPHYLAXIS
     Dosage: 1 DF, QD
     Route: 048
     Dates: start: 20160101, end: 20161019

REACTIONS (5)
  - Loss of consciousness [Fatal]
  - Hemiparesis [Fatal]
  - Injury [Fatal]
  - Haemorrhagic stroke [Fatal]
  - Coma [Fatal]

NARRATIVE: CASE EVENT DATE: 20161019
